FAERS Safety Report 8806248 (Version 2)
Quarter: 2013Q3

REPORT INFORMATION
  Report Type: Report from Study
  Country: MX (occurrence: MX)
  Receive Date: 20120925
  Receipt Date: 20130731
  Transmission Date: 20140515
  Serious: Yes (Hospitalization)
  Sender: FDA-Public Use
  Company Number: PHHY2012MX082832

PATIENT
  Age: 64 Year
  Sex: Female

DRUGS (3)
  1. ACLASTA [Suspect]
     Indication: OSTEOPOROSIS
     Dosage: 5 MG PER YEAR
     Route: 042
     Dates: start: 20090608
  2. ACLASTA [Suspect]
     Dosage: 5 MG PER YEAR
     Route: 042
     Dates: start: 201006
  3. ACLASTA [Suspect]
     Dosage: 5 MG PER YEAR
     Route: 042
     Dates: start: 20120910

REACTIONS (6)
  - Head injury [Recovered/Resolved]
  - Cerebral haematoma [Recovered/Resolved]
  - Weight decreased [Recovered/Resolved]
  - Scar [Recovered/Resolved]
  - Musculoskeletal pain [Recovered/Resolved]
  - Asthenia [Recovered/Resolved]
